FAERS Safety Report 18337210 (Version 2)
Quarter: 2020Q4

REPORT INFORMATION
  Report Type: Spontaneous
  Country: US (occurrence: US)
  Receive Date: 20201001
  Receipt Date: 20201212
  Transmission Date: 20210113
  Serious: Yes (Life-Threatening, Hospitalization)
  Sender: FDA-Public Use
  Company Number: US-ROCHE-2687435

PATIENT
  Sex: Female
  Weight: 77.18 kg

DRUGS (6)
  1. PENICILLIN V [Concomitant]
     Active Substance: PENICILLIN V
     Dosage: ONGOING: UNKNOWN
     Route: 048
     Dates: start: 20200813
  2. KADCYLA [Suspect]
     Active Substance: ADO-TRASTUZUMAB EMTANSINE
     Indication: METASTASES TO BONE
     Route: 042
     Dates: start: 20200827
  3. DEXAMETHASONE. [Concomitant]
     Active Substance: DEXAMETHASONE
     Dosage: ONGOING: UNKNOWN
     Route: 048
     Dates: start: 20200813
  4. FOLIC ACID. [Concomitant]
     Active Substance: FOLIC ACID
     Dosage: ONGOING: UNKNOWN
     Route: 048
     Dates: start: 20200813
  5. FISH OIL [Concomitant]
     Active Substance: FISH OIL
     Dosage: ONGOING: UNKNOWN
     Route: 048
     Dates: start: 20200813
  6. AZITHROMYCIN ANHYDROUS. [Concomitant]
     Active Substance: AZITHROMYCIN ANHYDROUS
     Dosage: ONGOING: UNKNOWN
     Route: 048
     Dates: start: 20200813

REACTIONS (4)
  - Intentional product use issue [Unknown]
  - Seizure [Recovering/Resolving]
  - Pain in extremity [Recovering/Resolving]
  - Off label use [Unknown]
